FAERS Safety Report 7235641-X (Version None)
Quarter: 2011Q1

REPORT INFORMATION
  Report Type: 
  Country: None (occurrence: None)
  Receive Date: 20110120
  Receipt Date: 20101022
  Transmission Date: 20110831
  Serious: No
  Sender: FDA-Public Use
  Company Number: US-BAYER-201022918BCC

PATIENT
  Sex: Female
  Weight: 63.636 kg

DRUGS (2)
  1. ALEVE [Suspect]
     Indication: HEADACHE
     Dosage: UNK
  2. VITAMIN D [Concomitant]

REACTIONS (1)
  - HEADACHE [None]
